FAERS Safety Report 6680908-7 (Version None)
Quarter: 2010Q2

REPORT INFORMATION
  Report Type: 
  Country: None (occurrence: None)
  Receive Date: 20100414
  Receipt Date: 20100402
  Transmission Date: 20101027
  Serious: Yes (Hospitalization, Other)
  Sender: FDA-Public Use
  Company Number: RU-BAYER-201021542GPV

PATIENT
  Age: 61 Year
  Sex: Female
  Weight: 74 kg

DRUGS (6)
  1. SORAFENIB [Suspect]
     Indication: COLORECTAL CANCER
     Dosage: TOTAL DAILY DOSE: 800 MG  UNIT DOSE: 200 MG
     Route: 048
     Dates: start: 20100125, end: 20100331
  2. OXALIPLATIN [Suspect]
     Indication: COLORECTAL CANCER
     Dosage: 153, 150, 148.85 MG
     Route: 042
     Dates: start: 20100125, end: 20100325
  3. LEUCOVORIN CALCIUM [Suspect]
     Indication: COLORECTAL CANCER
     Dosage: 720, 700 MG
     Route: 042
     Dates: start: 20100125, end: 20100325
  4. FLUOROURACIL [Suspect]
     Indication: COLORECTAL CANCER
     Dosage: 720, 700 MG
     Route: 040
     Dates: start: 20100125, end: 20100325
  5. FLUOROURACIL [Suspect]
     Dosage: 4320, 4200 MG EVERY TWO WEEKS FOR THREE DAYS
     Route: 041
     Dates: start: 20100125, end: 20100325
  6. FILGASTRIM [Concomitant]
     Dates: start: 20100330, end: 20100330

REACTIONS (1)
  - AXILLARY VEIN THROMBOSIS [None]
